FAERS Safety Report 7718267-0 (Version None)
Quarter: 2011Q3

REPORT INFORMATION
  Report Type: 
  Country: None (occurrence: None)
  Receive Date: 20110830
  Receipt Date: 20110819
  Transmission Date: 20111222
  Serious: Yes (Other)
  Sender: FDA-Public Use
  Company Number: PHHY2011BE75892

PATIENT
  Age: 1 Month

DRUGS (1)
  1. METHERGINE [Suspect]
     Dosage: 20 DRP, UNK
     Route: 048
     Dates: start: 20070101

REACTIONS (3)
  - ASTHENIA [None]
  - WRONG DRUG ADMINISTERED [None]
  - APATHY [None]
